FAERS Safety Report 4289376-6 (Version None)
Quarter: 2004Q1

REPORT INFORMATION
  Report Type: 
  Country: None (occurrence: None)
  Receive Date: 20040204
  Receipt Date: 20030310
  Transmission Date: 20041129
  Serious: No
  Sender: FDA-Public Use
  Company Number: 03H-163-0213269-00

PATIENT
  Age: 22 Year
  Sex: Female
  Weight: 131.5431 kg

DRUGS (6)
  1. ABBOKINASE [Suspect]
     Indication: ILIAC VEIN THROMBOSIS
     Dosage: SEE IMAGE
     Route: 042
     Dates: start: 20030308, end: 20030308
  2. ABBOKINASE [Suspect]
     Indication: PULMONARY EMBOLISM
     Dosage: SEE IMAGE
     Route: 042
     Dates: start: 20030308, end: 20030308
  3. ABBOKINASE [Suspect]
     Indication: ILIAC VEIN THROMBOSIS
     Dosage: SEE IMAGE
     Route: 042
     Dates: start: 20030308, end: 20030309
  4. ABBOKINASE [Suspect]
     Indication: PULMONARY EMBOLISM
     Dosage: SEE IMAGE
     Route: 042
     Dates: start: 20030308, end: 20030309
  5. .. [Concomitant]
  6. HEPARIN [Concomitant]

REACTIONS (3)
  - HAEMATEMESIS [None]
  - HEART RATE INCREASED [None]
  - NAUSEA [None]
